FAERS Safety Report 9753596 (Version 13)
Quarter: 2015Q1

REPORT INFORMATION
  Report Type: Report from Study
  Country: KR (occurrence: KR)
  Receive Date: 20131213
  Receipt Date: 20150120
  Transmission Date: 20150721
  Serious: Yes (Hospitalization)
  Sender: FDA-Public Use
  Company Number: PHHO2013KR015939

PATIENT
  Age: 70 Year
  Sex: Male
  Weight: 60 kg

DRUGS (40)
  1. LASIX [Concomitant]
     Active Substance: FUROSEMIDE
     Dosage: 60 MG, GD
     Route: 048
     Dates: start: 20140820, end: 20140928
  2. ALDACTONE [Concomitant]
     Active Substance: SPIRONOLACTONE
     Dosage: 12.5 MG, QD
     Route: 048
     Dates: start: 20131028, end: 20131101
  3. ALDACTONE [Concomitant]
     Active Substance: SPIRONOLACTONE
     Dosage: 12.5 MG, BID
     Route: 048
     Dates: start: 20131128, end: 20131204
  4. ALDACTONE [Concomitant]
     Active Substance: SPIRONOLACTONE
     Dosage: 18.75 MG, BID
     Route: 048
     Dates: start: 20131205, end: 20140613
  5. STABLON [Concomitant]
     Active Substance: TIANEPTINE
     Dosage: 12.5 MG, BID
     Route: 048
     Dates: start: 20140613, end: 20140819
  6. ERDOS [Concomitant]
     Indication: PRODUCTIVE COUGH
     Dosage: 300 MG, BID
     Route: 048
     Dates: start: 20140327, end: 20140806
  7. ASIMA [Concomitant]
     Indication: COUGH
     Dosage: 400 MG, BID
     Route: 048
     Dates: start: 20140327, end: 20140806
  8. RESPILENE [Concomitant]
     Indication: PRODUCTIVE COUGH
     Dosage: 37.5 MG, TID
     Route: 048
     Dates: start: 20140313, end: 20140326
  9. ALISKIREN [Suspect]
     Active Substance: ALISKIREN
     Dosage: UNK
     Route: 048
     Dates: start: 20131010, end: 20131101
  10. LASIX [Concomitant]
     Active Substance: FUROSEMIDE
     Dosage: 40 MG, BID
     Route: 048
     Dates: start: 20140614, end: 20140806
  11. LASIX [Concomitant]
     Active Substance: FUROSEMIDE
     Dosage: 60 MG, BID
     Route: 048
     Dates: start: 20140807, end: 20140819
  12. DILATREND [Concomitant]
     Active Substance: CARVEDILOL
     Dosage: 6.25 MG, BID
     Route: 048
     Dates: start: 20141126
  13. MIDRONE [Concomitant]
     Dosage: 3.75 MG, BID
     Route: 048
     Dates: start: 20140614, end: 20140819
  14. MAGO [Concomitant]
     Indication: CONSTIPATION PROPHYLAXIS
     Dosage: 250 MG, BID
     Route: 048
     Dates: start: 20140616
  15. ALISKIREN [Suspect]
     Active Substance: ALISKIREN
     Indication: CARDIAC FAILURE
     Dosage: UNK
     Route: 048
     Dates: start: 20090707, end: 20130909
  16. DIGOXIN. [Concomitant]
     Active Substance: DIGOXIN
     Indication: CARDIAC FAILURE CHRONIC
     Dosage: 0.125 MG, QD
     Route: 048
     Dates: start: 20090103
  17. MIDRONE [Concomitant]
     Dosage: 5 MG, BID
     Route: 048
     Dates: start: 20140820
  18. LASIX [Concomitant]
     Active Substance: FUROSEMIDE
     Dosage: 60 MG, QD
     Route: 048
     Dates: start: 20131102, end: 20131112
  19. ASPIRIN. [Concomitant]
     Active Substance: ASPIRIN
     Indication: THROMBOSIS PROPHYLAXIS
     Dosage: 100 MG, QD
     Route: 048
     Dates: start: 20081226
  20. DILATREND [Concomitant]
     Active Substance: CARVEDILOL
     Indication: CARDIAC FAILURE CHRONIC
     Dosage: 3.125 MG, BID
     Route: 048
     Dates: start: 20100312, end: 20140820
  21. TRITACE [Concomitant]
     Active Substance: RAMIPRIL
     Indication: CARDIAC FAILURE CHRONIC
     Dosage: 1.25 MG, QD
     Route: 048
     Dates: start: 20140806
  22. LASIX [Concomitant]
     Active Substance: FUROSEMIDE
     Dosage: 20 MG, GD
     Route: 048
     Dates: start: 20141007, end: 20141008
  23. ALDACTONE [Concomitant]
     Active Substance: SPIRONOLACTONE
     Dosage: 25 MG, GD
     Route: 048
     Dates: start: 20131102, end: 20131112
  24. SPIRIVA [Concomitant]
     Active Substance: TIOTROPIUM BROMIDE MONOHYDRATE
     Indication: PNEUMONIA KLEBSIELLA
     Dosage: 18 UG, QD
     Route: 055
     Dates: start: 20140327
  25. MUTERAN [Concomitant]
     Dosage: 200 MG, TID
     Route: 048
     Dates: start: 20140612, end: 20140618
  26. LEXAPRO [Concomitant]
     Active Substance: ESCITALOPRAM OXALATE
     Indication: ANXIETY DISORDER
     Dosage: 5 MG, QD
     Route: 048
     Dates: start: 20140617, end: 20140819
  27. PANTOLOC [Concomitant]
     Active Substance: PANTOPRAZOLE SODIUM
     Indication: PROPHYLAXIS
     Dosage: 20 MG, QD
     Route: 048
     Dates: start: 20140616
  28. ALISKIREN [Suspect]
     Active Substance: ALISKIREN
     Dosage: UNK
     Route: 048
     Dates: start: 20130910, end: 20131009
  29. LASIX [Concomitant]
     Active Substance: FUROSEMIDE
     Indication: CARDIAC FAILURE CHRONIC
     Dosage: 20 MG, BID
     Route: 048
     Dates: start: 20131028, end: 20131204
  30. LASIX [Concomitant]
     Active Substance: FUROSEMIDE
     Dosage: 30 MG, BID
     Route: 048
     Dates: start: 20131205, end: 20140613
  31. STABLON [Concomitant]
     Active Substance: TIANEPTINE
     Indication: PROPHYLAXIS
     Dosage: 6.25 MG, BID
     Route: 048
     Dates: start: 20140101, end: 20140613
  32. MIDRONE [Concomitant]
     Indication: PROPHYLAXIS
     Dosage: 1.25 MG, BID
     Route: 048
     Dates: start: 20131205, end: 20140613
  33. SERETIDE [Concomitant]
     Active Substance: FLUTICASONE FUROATE\SALMETEROL XINAFOATE
     Indication: PNEUMONIA KLEBSIELLA
     Dosage: 60 DOSE BID
     Route: 055
     Dates: start: 20140327
  34. MUTERAN [Concomitant]
     Indication: PRODUCTIVE COUGH
     Dosage: 200 MG, TID
     Route: 048
     Dates: start: 20140313, end: 20140326
  35. LASIX [Concomitant]
     Active Substance: FUROSEMIDE
     Dosage: 60 MG, GD
     Route: 065
     Dates: start: 20141015
  36. ALDACTONE [Concomitant]
     Active Substance: SPIRONOLACTONE
     Dosage: 25 MG, BID
     Route: 048
     Dates: start: 20140614
  37. VASTINAN [Concomitant]
     Indication: CARDIAC FAILURE CHRONIC
     Dosage: 35 MG, BID
     Route: 048
     Dates: start: 20081230, end: 20140630
  38. MEVALOTIN [Concomitant]
     Active Substance: PRAVASTATIN SODIUM
     Indication: PROPHYLAXIS
     Dosage: 20 MG, QD
     Route: 048
     Dates: start: 20081231, end: 20140612
  39. MOTILIDONE [Concomitant]
     Indication: PROPHYLAXIS
     Dosage: 30 MG, TID
     Route: 048
     Dates: start: 20140701
  40. ALDACTONE [Concomitant]
     Active Substance: SPIRONOLACTONE
     Indication: CARDIAC FAILURE CHRONIC
     Dosage: 6.25 MG, QD
     Route: 048
     Dates: start: 20111107, end: 20131027

REACTIONS (1)
  - Cardiac failure [Recovered/Resolved]

NARRATIVE: CASE EVENT DATE: 20131102
